FAERS Safety Report 10037389 (Version 1)
Quarter: 2014Q1

REPORT INFORMATION
  Report Type: Spontaneous
  Country: JP (occurrence: None)
  Receive Date: 20140324
  Receipt Date: 20140324
  Transmission Date: 20141002
  Serious: Yes (Other)
  Sender: FDA-Public Use
  Company Number: KAD201403-000320

PATIENT
  Age: 61 Year
  Sex: Male

DRUGS (2)
  1. RIBAVIRIN (RIBAVIRIN) [Suspect]
     Indication: CHRONIC HEPATITIS C
  2. PEGYLATED INTERFERON (PEGYLATED INTERFERON) [Suspect]
     Indication: CHRONIC HEPATITIS C

REACTIONS (1)
  - Aphthous stomatitis [None]
